FAERS Safety Report 9452229 (Version 1)
Quarter: 2013Q3

REPORT INFORMATION
  Report Type: Spontaneous
  Country: CN (occurrence: CN)
  Receive Date: 20130812
  Receipt Date: 20130812
  Transmission Date: 20140515
  Serious: Yes (Other)
  Sender: FDA-Public Use
  Company Number: CN-JNJFOC-20130802867

PATIENT
  Age: 75 Year
  Sex: Male

DRUGS (2)
  1. IMODIUM [Suspect]
     Indication: DIARRHOEA
     Route: 048
  2. MONTMORILLONITE [Concomitant]
     Indication: DIARRHOEA
     Route: 048

REACTIONS (1)
  - Herpes virus infection [Not Recovered/Not Resolved]
